FAERS Safety Report 25924792 (Version 1)
Quarter: 2025Q4

REPORT INFORMATION
  Report Type: Spontaneous
  Country: US (occurrence: None)
  Receive Date: 20251013
  Receipt Date: 20251013
  Transmission Date: 20260117
  Serious: Yes (Disabling)
  Sender: FDA-CTU
  Company Number: None

PATIENT
  Age: 35 Year
  Sex: Male
  Weight: 63 kg

DRUGS (3)
  1. FLUOXETINE [Suspect]
     Active Substance: FLUOXETINE HYDROCHLORIDE
     Indication: Persistent depressive disorder
     Dosage: FREQUENCY : DAILY;?
     Route: 048
  2. TRINTELLIX [Suspect]
     Active Substance: VORTIOXETINE HYDROBROMIDE
  3. Testosterone replacement therapy [Concomitant]

REACTIONS (7)
  - Anger [None]
  - Impulsive behaviour [None]
  - Hypertension [None]
  - Tachycardia [None]
  - Drug withdrawal syndrome [None]
  - Libido decreased [None]
  - Product complaint [None]

NARRATIVE: CASE EVENT DATE: 20250110
